FAERS Safety Report 6420549-X (Version None)
Quarter: 2009Q4

REPORT INFORMATION
  Report Type: 
  Country: None (occurrence: None)
  Receive Date: 20091027
  Receipt Date: 20091023
  Transmission Date: 20100525
  Serious: Yes (Hospitalization)
  Sender: FDA-Public Use
  Company Number: GXKR2009DE11617

PATIENT
  Age: 85 Year
  Sex: Female
  Weight: 69 kg

DRUGS (7)
  1. RAMIPRIL [Suspect]
     Indication: HYPERTENSION
     Dosage: 5 MG, UNK, ORAL
     Route: 048
     Dates: start: 20070801
  2. SULPIRIDE (NGX) (SULPIRIDE) TABLET, 50MG [Suspect]
     Dosage: 50 MG, QD, ORAL
     Route: 048
  3. ASPIRIN [Concomitant]
  4. ACTRAPID HUMAN (INSULIN HUMAN) [Concomitant]
  5. DIGITOXIN INJ [Concomitant]
  6. LANTUS [Concomitant]
  7. NITRENDIPINE (NITRENDIPINE) [Concomitant]

REACTIONS (1)
  - FAECALOMA [None]
